FAERS Safety Report 6164892-0 (Version None)
Quarter: 2009Q2

REPORT INFORMATION
  Report Type: 
  Country: None (occurrence: None)
  Receive Date: 20090422
  Receipt Date: 20090407
  Transmission Date: 20091009
  Serious: Yes (Hospitalization)
  Sender: FDA-Public Use
  Company Number: B0570302A

PATIENT
  Age: 61 Year
  Sex: Female

DRUGS (8)
  1. MELPHALAN (FORMULATION UNKNOWN) (GENERIC) (MELPHALAN) [Suspect]
     Indication: MULTIPLE MYELOMA
     Dosage: INTRAVENOUS
     Route: 042
     Dates: start: 20030101
  2. DOXORUBICIN HCL [Suspect]
     Indication: MULTIPLE MYELOMA
     Dates: start: 20030101
  3. DEXAMETHASONE [Suspect]
     Indication: MULTIPLE MYELOMA
     Dates: start: 20030101
  4. CYCLOPHOSPHAMIDE [Suspect]
     Indication: MULTIPLE MYELOMA
     Dates: start: 20050101
  5. THALIDOMIDE [Suspect]
     Indication: MULTIPLE MYELOMA
     Dates: start: 20050101
  6. METOCLOPRAMIDE [Concomitant]
  7. ONDANSETRON HYDROCHLORIDE [Concomitant]
  8. DARBEPOETIN ALFA [Concomitant]

REACTIONS (12)
  - BONE MARROW FAILURE [None]
  - CEREBELLAR SYNDROME [None]
  - CRYPTOCOCCOSIS [None]
  - ENCEPHALITIS [None]
  - HAEMOGLOBIN DECREASED [None]
  - HYDROCEPHALUS [None]
  - INTENTION TREMOR [None]
  - NYSTAGMUS [None]
  - POLYNEUROPATHY [None]
  - STEM CELL TRANSPLANT [None]
  - T-LYMPHOCYTE COUNT DECREASED [None]
  - VERTIGO [None]
